FAERS Safety Report 21273220 (Version 1)
Quarter: 2022Q3

REPORT INFORMATION
  Report Type: Spontaneous
  Country: US (occurrence: US)
  Receive Date: 20220831
  Receipt Date: 20220831
  Transmission Date: 20221027
  Serious: No
  Sender: FDA-Public Use
  Company Number: US-LUPIN PHARMACEUTICALS INC.-2022-10633

PATIENT
  Sex: Male

DRUGS (1)
  1. CEPHALEXIN [Suspect]
     Active Substance: CEPHALEXIN
     Indication: Eczema infected
     Dosage: 1 DOSAGE FORM, TID (1 TABLET THREE TIMES A DAY)
     Route: 048
     Dates: start: 20220808, end: 20220815

REACTIONS (2)
  - Testicular pain [Unknown]
  - Semen volume decreased [Unknown]

NARRATIVE: CASE EVENT DATE: 20220801
